FAERS Safety Report 25605532 (Version 1)
Quarter: 2025Q3

REPORT INFORMATION
  Report Type: Report from Study
  Country: IN (occurrence: IN)
  Receive Date: 20250725
  Receipt Date: 20250725
  Transmission Date: 20251020
  Serious: Yes (Death, Other)
  Sender: Vantive US Healthcare
  Company Number: IN-BAXTER-2024VAN019283

PATIENT
  Age: 62 Year
  Sex: Female

DRUGS (3)
  1. DIANEAL PD-2 PERITONEAL DIALYSIS SOLUTION WITH DEXTROSE [Suspect]
     Active Substance: CALCIUM CHLORIDE\DEXTROSE\MAGNESIUM CHLORIDE\SODIUM CHLORIDE\SODIUM LACTATE
     Indication: Renal failure
     Route: 033
  2. DIANEAL PD-2 PERITONEAL DIALYSIS SOLUTION WITH DEXTROSE [Suspect]
     Active Substance: CALCIUM CHLORIDE\DEXTROSE\MAGNESIUM CHLORIDE\SODIUM CHLORIDE\SODIUM LACTATE
     Indication: Renal failure
     Route: 033
  3. UNSPECIFIED INGREDIENT [Suspect]
     Active Substance: UNSPECIFIED INGREDIENT
     Route: 065

REACTIONS (21)
  - Sepsis [Fatal]
  - Ageusia [Fatal]
  - Hypotension [Fatal]
  - Peritoneal cloudy effluent [Recovered/Resolved]
  - Peritonitis [Recovering/Resolving]
  - Peritoneal cloudy effluent [Recovered/Resolved]
  - Asthenia [Recovering/Resolving]
  - Abdominal pain [Recovering/Resolving]
  - Decreased appetite [Recovering/Resolving]
  - Asthenia [Recovered/Resolved]
  - Peritoneal dialysis complication [Recovered/Resolved]
  - Peritoneal dialysis complication [Recovered/Resolved]
  - Gait disturbance [Recovering/Resolving]
  - Decreased appetite [Recovered/Resolved]
  - Inadequate peritoneal dialysis [Not Recovered/Not Resolved]
  - Treatment noncompliance [Not Recovered/Not Resolved]
  - Blood urea increased [Recovering/Resolving]
  - Hypercreatininaemia [Recovering/Resolving]
  - Hypohaemoglobinaemia [Recovering/Resolving]
  - Leukocytosis [Recovering/Resolving]
  - Procedural pain [Not Recovered/Not Resolved]

NARRATIVE: CASE EVENT DATE: 20250709
